FAERS Safety Report 9624698 (Version 2)
Quarter: 2013Q4

REPORT INFORMATION
  Report Type: Spontaneous
  Country: US (occurrence: US)
  Receive Date: 20131015
  Receipt Date: 20131017
  Transmission Date: 20140711
  Serious: Yes (Hospitalization)
  Sender: FDA-Public Use
  Company Number: US-BAXTER-2013BAX040052

PATIENT
  Age: 41 Year
  Sex: Female

DRUGS (3)
  1. DIANEAL PD2 [Suspect]
     Indication: PERITONEAL DIALYSIS
     Route: 033
     Dates: start: 20111128
  2. DIANEAL PD2 [Suspect]
     Indication: PERITONEAL DIALYSIS
     Route: 033
     Dates: start: 20111128
  3. PROAMATINE [Concomitant]
     Indication: HYPOTENSION
     Route: 048

REACTIONS (2)
  - Blood glucose decreased [Recovered/Resolved]
  - Hypotension [Not Recovered/Not Resolved]
